FAERS Safety Report 9146863 (Version 1)
Quarter: 2013Q1

REPORT INFORMATION
  Report Type: Spontaneous
  Country: US (occurrence: None)
  Receive Date: 20130228
  Receipt Date: 20130228
  Transmission Date: 20140127
  Serious: Yes (Hospitalization)
  Sender: FDA-Public Use
  Company Number: None

PATIENT
  Age: 51 Year
  Sex: Female
  Weight: 74.39 kg

DRUGS (1)
  1. DONEPEZIL/PLACEBO [Suspect]
     Indication: COGNITIVE DISORDER
     Route: 048
     Dates: start: 20121223, end: 20130114

REACTIONS (2)
  - Escherichia urinary tract infection [None]
  - Escherichia bacteraemia [None]
